FAERS Safety Report 4632525-8 (Version None)
Quarter: 2005Q2

REPORT INFORMATION
  Report Type: 
  Country: None (occurrence: None)
  Receive Date: 20050408
  Receipt Date: 20050322
  Transmission Date: 20051028
  Serious: Yes (Hospitalization)
  Sender: FDA-Public Use
  Company Number: PHBS2005DEU03547

PATIENT
  Age: 51 Year
  Sex: Female

DRUGS (2)
  1. CLOZAPINE [Suspect]
     Indication: PARANOIA
     Dosage: 12.5 MG/D, UNKNOWN (SEE IMAGE)
  2. MIRTAZAPINE [Suspect]
     Indication: DEPRESSION
     Dosage: 30 5MG/D, UNKNOWN (SEE IMAGE)

REACTIONS (8)
  - AKINESIA [None]
  - APHASIA [None]
  - DRUG INTERACTION [None]
  - DRUG TOXICITY [None]
  - ESCHERICHIA URINARY TRACT INFECTION [None]
  - GAIT DISTURBANCE [None]
  - INCOHERENT [None]
  - THERAPY NON-RESPONDER [None]
